FAERS Safety Report 6142253-8 (Version None)
Quarter: 2009Q2

REPORT INFORMATION
  Report Type: 
  Country: None (occurrence: None)
  Receive Date: 20090402
  Receipt Date: 20090402
  Transmission Date: 20091009
  Serious: Yes (Other)
  Sender: FDA-Public Use
  Company Number: None

PATIENT
  Age: 28 Year
  Sex: Male
  Weight: 81 kg

DRUGS (2)
  1. SILVER SULFADIAZINE [Suspect]
     Indication: INJURY
     Dosage: TOPICALLY
     Route: 061
  2. SILVER SULFADIAZINE [Suspect]
     Indication: THERMAL BURN
     Dosage: TOPICALLY
     Route: 061

REACTIONS (2)
  - APPLICATION SITE BLEEDING [None]
  - PRODUCT QUALITY ISSUE [None]
